FAERS Safety Report 10726122 (Version 7)
Quarter: 2015Q1

REPORT INFORMATION
  Report Type: Spontaneous
  Country: AU (occurrence: AU)
  Receive Date: 20150121
  Receipt Date: 20150311
  Transmission Date: 20150721
  Serious: Yes (Hospitalization)
  Sender: FDA-Public Use
  Company Number: AU-SA-2015SA005384

PATIENT
  Age: 16 Year
  Sex: Female

DRUGS (3)
  1. APIDRA SOLOSTAR [Suspect]
     Active Substance: INSULIN GLULISINE
     Indication: TYPE 1 DIABETES MELLITUS
     Dosage: FREQUENCY: CONTINUOUS
     Route: 058
     Dates: start: 2013, end: 20150116
  2. APIDRA SOLOSTAR [Suspect]
     Active Substance: INSULIN GLULISINE
     Indication: TYPE 1 DIABETES MELLITUS
     Dosage: FREQUENCY: CONTINUOUS
     Route: 058
     Dates: start: 2013, end: 20150116
  3. INSULIN PUMP [Concomitant]
     Active Substance: INSULIN NOS
     Dates: start: 2012

REACTIONS (3)
  - Ketoacidosis [Recovered/Resolved]
  - Drug ineffective [Unknown]
  - Blood glucose abnormal [Unknown]
